FAERS Safety Report 5062657-4 (Version None)
Quarter: 2006Q3

REPORT INFORMATION
  Report Type: 
  Country: None (occurrence: None)
  Receive Date: 20060721
  Receipt Date: 20060707
  Transmission Date: 20061208
  Serious: Yes (Other)
  Sender: FDA-Public Use
  Company Number: 2006S1000126

PATIENT
  Age: 44 Year
  Sex: Male

DRUGS (6)
  1. CUBICIN [Suspect]
     Indication: BACTERAEMIA
     Dosage: 800 MG;Q2H;IV
     Route: 042
     Dates: start: 20050502, end: 20050705
  2. VANCOMYCIN [Concomitant]
  3. LEVOFLOXACIN [Concomitant]
  4. XIGRIS [Concomitant]
  5. PENICILLIN [Concomitant]
  6. RIFAMPIN [Concomitant]

REACTIONS (14)
  - ALANINE AMINOTRANSFERASE INCREASED [None]
  - AORTIC VALVE DISEASE [None]
  - ASPARTATE AMINOTRANSFERASE INCREASED [None]
  - CEREBRAL INFARCTION [None]
  - CLOSTRIDIUM DIFFICILE TOXIN TEST POSITIVE [None]
  - ENDOCARDITIS [None]
  - EOSINOPHILIA [None]
  - HAEMODIALYSIS [None]
  - NAUSEA [None]
  - PNEUMONIA ASPIRATION [None]
  - PULMONARY EMBOLISM [None]
  - RENAL FAILURE [None]
  - SEPTIC EMBOLUS [None]
  - VOMITING [None]
